FAERS Safety Report 4904784-5 (Version None)
Quarter: 2006Q1

REPORT INFORMATION
  Report Type: 
  Country: None (occurrence: None)
  Receive Date: 20060208
  Receipt Date: 20051004
  Transmission Date: 20060701
  Serious: No
  Sender: FDA-Public Use
  Company Number: US-GLAXOSMITHKLINE-A0576976A

PATIENT
  Age: 63 Year
  Sex: Female

DRUGS (6)
  1. PAROXETINE HCL [Suspect]
     Dosage: 20MG PER DAY
     Route: 048
     Dates: start: 20050601
  2. SYNTHROID [Concomitant]
  3. FORTEO [Concomitant]
  4. PREVACID [Concomitant]
  5. TOPAMAX [Concomitant]
  6. LIPITOR [Concomitant]

REACTIONS (2)
  - DRUG INEFFECTIVE [None]
  - NERVOUSNESS [None]
